FAERS Safety Report 4887316-X (Version None)
Quarter: 2005Q4

REPORT INFORMATION
  Report Type: 
  Country: None (occurrence: None)
  Receive Date: 20051221
  Receipt Date: 20051031
  Transmission Date: 20060501
  Serious: No
  Sender: FDA-Public Use
  Company Number: US-YAMANOUCHI-YPA20050515

PATIENT
  Age: 73 Year
  Sex: Male
  Weight: 79.3795 kg

DRUGS (5)
  1. VESICARE [Suspect]
     Indication: URINARY INCONTINENCE
     Dosage: 10 MG QD PO
     Route: 048
     Dates: start: 20050809, end: 20050901
  2. VESICARE [Suspect]
     Indication: POST PROCEDURAL COMPLICATION
     Dosage: 10 MG QD PO
     Route: 048
     Dates: start: 20051006
  3. PREVACID [Concomitant]
  4. HYALURONIC ACID [Concomitant]
  5. TYLENOL-500 [Concomitant]

REACTIONS (3)
  - DRUG INEFFECTIVE [None]
  - HEADACHE [None]
  - PRURITUS [None]
